FAERS Safety Report 18268145 (Version 1)
Quarter: 2020Q3

REPORT INFORMATION
  Report Type: Spontaneous
  Country: ES (occurrence: ES)
  Receive Date: 20200915
  Receipt Date: 20200915
  Transmission Date: 20201103
  Serious: Yes (Hospitalization)
  Sender: FDA-Public Use
  Company Number: ES-PFIZER INC-2020349179

PATIENT
  Age: 86 Year
  Sex: Female

DRUGS (9)
  1. FUROSEMIDA [FUROSEMIDE] [Concomitant]
     Active Substance: FUROSEMIDE
     Indication: CARDIAC FAILURE
     Dosage: 40 MG, 1X/DAY, FREQ:24 H;
     Route: 048
     Dates: start: 20190510
  2. LORAZEPAM. [Concomitant]
     Active Substance: LORAZEPAM
     Indication: INSOMNIA
     Dosage: 1 MG, 1X/DAY, FREQ:24 H;
     Route: 048
     Dates: start: 20090811
  3. BISOPROLOL [Concomitant]
     Active Substance: BISOPROLOL
     Indication: TYPE 2 DIABETES MELLITUS
     Dosage: 2.5 MG, 1X/DAY, FREQ:24 H;
     Route: 048
     Dates: start: 20170831
  4. ATROVENT [Concomitant]
     Active Substance: IPRATROPIUM BROMIDE
     Dosage: UNK
  5. ATROVENT [Concomitant]
     Active Substance: IPRATROPIUM BROMIDE
     Indication: BRONCHITIS CHRONIC
     Dosage: 60 UG, FREQ:4 H;
     Route: 055
     Dates: start: 20171110
  6. ATORVASTATINA ABEX [Concomitant]
     Indication: TYPE V HYPERLIPIDAEMIA
     Dosage: 20 MG, 1X/DAY, FREQ:24 H;
     Route: 048
     Dates: start: 20150318
  7. METHYLPREDNISOLONE SODIUM SUCCINATE. [Suspect]
     Active Substance: METHYLPREDNISOLONE SODIUM SUCCINATE
     Indication: DYSPNOEA
     Dosage: 20 MG, 2X/DAY, FREQ:12 H;
     Route: 042
     Dates: start: 20200103, end: 2020
  8. AMLODIPINE, VALSARTAN AND HYDROCHLOROTHIAZIDE [Concomitant]
     Active Substance: AMLODIPINE BESYLATE\HYDROCHLOROTHIAZIDE\VALSARTAN
     Indication: ESSENTIAL HYPERTENSION
     Dosage: 1 DF, 1X/DAY, FREQ:24 H;
     Route: 048
     Dates: start: 20150402
  9. ACETYLSALICYLIC ACID [Concomitant]
     Active Substance: ASPIRIN
     Indication: ESSENTIAL HYPERTENSION
     Dosage: 100 MG, 1X/DAY, FREQ:24 H;
     Route: 048
     Dates: start: 20090812

REACTIONS (1)
  - Diabetes mellitus inadequate control [Recovered/Resolved]

NARRATIVE: CASE EVENT DATE: 20200103
